FAERS Safety Report 7644949-5 (Version None)
Quarter: 2011Q3

REPORT INFORMATION
  Report Type: 
  Country: None (occurrence: None)
  Receive Date: 20110729
  Receipt Date: 20110526
  Transmission Date: 20111222
  Serious: Yes (Hospitalization, Other)
  Sender: FDA-Public Use
  Company Number: CA-GLAXOSMITHKLINE-A0929349A

PATIENT
  Sex: Female

DRUGS (7)
  1. AREDIA [Concomitant]
     Route: 042
  2. ZOLADEX [Concomitant]
     Route: 058
  3. AROMASIN [Concomitant]
  4. HERCEPTIN [Concomitant]
     Route: 042
  5. TYKERB [Suspect]
     Indication: BREAST CANCER METASTATIC
     Dosage: 1250MG PER DAY
     Route: 048
     Dates: start: 20110521, end: 20110719
  6. XELODA [Suspect]
     Indication: BREAST CANCER METASTATIC
     Dosage: 500MG UNKNOWN
     Route: 065
     Dates: end: 20110719
  7. SEROQUEL [Concomitant]

REACTIONS (5)
  - ABDOMINAL PAIN [None]
  - DIZZINESS [None]
  - FATIGUE [None]
  - AMNESIA [None]
  - ENTEROCOLITIS [None]
